FAERS Safety Report 25162260 (Version 3)
Quarter: 2025Q2

REPORT INFORMATION
  Report Type: Spontaneous
  Country: US (occurrence: US)
  Receive Date: 20250404
  Receipt Date: 20250511
  Transmission Date: 20250717
  Serious: No
  Sender: SANOFI AVENTIS
  Company Number: US-SA-2025SA097082

PATIENT
  Age: 66 Year
  Sex: Female

DRUGS (7)
  1. DUPIXENT [Suspect]
     Active Substance: DUPILUMAB
     Indication: Dermatitis atopic
     Route: 058
     Dates: start: 202503, end: 202503
  2. DUPIXENT [Suspect]
     Active Substance: DUPILUMAB
     Indication: Eczema
     Dosage: 300 MG, QOW
     Route: 058
     Dates: start: 2025
  3. DUPIXENT [Suspect]
     Active Substance: DUPILUMAB
     Indication: Dermatitis atopic
     Dosage: 300 MG, QOW
     Route: 058
     Dates: start: 2025
  4. DUPIXENT [Suspect]
     Active Substance: DUPILUMAB
     Indication: Eczema
  5. ZEPBOUND [Suspect]
     Active Substance: TIRZEPATIDE
     Dates: start: 20250321
  6. ZEPBOUND [Suspect]
     Active Substance: TIRZEPATIDE
     Dates: start: 20250328
  7. ZEPBOUND [Suspect]
     Active Substance: TIRZEPATIDE
     Dates: start: 20250402

REACTIONS (8)
  - Constipation [Unknown]
  - Nausea [Unknown]
  - Diarrhoea [Unknown]
  - Injection site discolouration [Unknown]
  - Injection site erythema [Unknown]
  - Injection site swelling [Unknown]
  - Injection site pain [Recovered/Resolved]
  - Product preparation error [Unknown]

NARRATIVE: CASE EVENT DATE: 20250101
